FAERS Safety Report 10310258 (Version 1)
Quarter: 2014Q3

REPORT INFORMATION
  Report Type: Spontaneous
  Country: CN (occurrence: None)
  Receive Date: 20140715
  Receipt Date: 20140715
  Transmission Date: 20150326
  Serious: Yes (Hospitalization, Other)
  Sender: FDA-Public Use
  Company Number: CH-DEXPHARM-20140455

PATIENT
  Age: 81 Year
  Sex: Male

DRUGS (1)
  1. CHLORHEXIDINE (CHLORHEXIDINE) [Suspect]
     Active Substance: CHLORHEXIDINE
     Route: 013

REACTIONS (4)
  - Injection site ischaemia [None]
  - Arthritis bacterial [None]
  - Cyanosis [None]
  - Accidental exposure to product [None]
